FAERS Safety Report 16512627 (Version 1)
Quarter: 2019Q3

REPORT INFORMATION
  Report Type: Spontaneous
  Country: FR (occurrence: FR)
  Receive Date: 20190701
  Receipt Date: 20190701
  Transmission Date: 20191004
  Serious: Yes (Congenital Anomaly, Other)
  Sender: FDA-Public Use
  Company Number: FR-MYLANLABS-2019M1060168

PATIENT
  Sex: Male

DRUGS (4)
  1. DEPAKINE                           /00228502/ [Suspect]
     Active Substance: VALPROATE SODIUM
     Indication: EPILEPSY
     Dosage: UNK
     Route: 064
     Dates: start: 197801, end: 19780920
  2. CARBAMAZEPINE. [Suspect]
     Active Substance: CARBAMAZEPINE
     Indication: PRODUCT USED FOR UNKNOWN INDICATION
     Dosage: UNK UNK, UNK
     Route: 064
     Dates: start: 197801, end: 19780920
  3. VALIUM [Concomitant]
     Active Substance: DIAZEPAM
     Dosage: 6TH MOTH OF PREGNANCY
     Route: 064
  4. ORTENAL [Concomitant]
     Active Substance: AMPHETAMINE SULFATE\PHENOBARBITAL
     Dosage: 6TH MOTH OF PREGNANCY
     Route: 064

REACTIONS (9)
  - Cleft lip [Recovered/Resolved with Sequelae]
  - Diabetes insipidus [Unknown]
  - Talipes [Unknown]
  - Foetal exposure during pregnancy [Recovered/Resolved]
  - Cardiac disorder [Unknown]
  - Tooth malformation [Unknown]
  - Enuresis [Recovered/Resolved]
  - Developmental delay [Unknown]
  - Depression [Unknown]

NARRATIVE: CASE EVENT DATE: 19780920
